FAERS Safety Report 5102255-7 (Version None)
Quarter: 2006Q3

REPORT INFORMATION
  Report Type: 
  Country: None (occurrence: None)
  Receive Date: 20060912
  Receipt Date: 20060714
  Transmission Date: 20061208
  Serious: Yes (Hospitalization)
  Sender: FDA-Public Use
  Company Number: JP-JNJFOC-20060703720

PATIENT
  Sex: Male

DRUGS (7)
  1. RISPERDAL [Suspect]
     Indication: BRAIN CONTUSION
     Route: 048
     Dates: start: 20060620, end: 20060727
  2. ALDACTONE [Concomitant]
     Indication: CARDIAC FAILURE CONGESTIVE
     Route: 048
  3. THYRADIN S [Concomitant]
     Indication: HYPOPITUITARISM
     Route: 048
  4. DEPAKENE [Concomitant]
     Indication: EPILEPSY
     Route: 048
  5. PREDONINE [Concomitant]
     Indication: HYPOPITUITARISM
     Route: 048
  6. MUCODYNE [Concomitant]
     Indication: SPUTUM RETENTION
     Route: 048
  7. LASIX [Concomitant]
     Indication: CARDIAC FAILURE CONGESTIVE
     Route: 048

REACTIONS (2)
  - AMMONIA INCREASED [None]
  - HYPOTHERMIA [None]
